FAERS Safety Report 25348607 (Version 1)
Quarter: 2025Q2

REPORT INFORMATION
  Report Type: Spontaneous
  Country: US (occurrence: None)
  Receive Date: 20250522
  Receipt Date: 20250522
  Transmission Date: 20250716
  Serious: Yes (Hospitalization)
  Sender: FDA-CTU
  Company Number: None

PATIENT
  Age: 81 Year
  Weight: 83 kg

DRUGS (1)
  1. INFED [Suspect]
     Active Substance: IRON DEXTRAN
     Route: 040
     Dates: start: 20250514, end: 20250514

REACTIONS (6)
  - Syncope [None]
  - Infusion related reaction [None]
  - Musculoskeletal stiffness [None]
  - Heart rate decreased [None]
  - Hypertension [None]
  - Pneumonia [None]

NARRATIVE: CASE EVENT DATE: 20250514
